FAERS Safety Report 7229274-9 (Version None)
Quarter: 2011Q1

REPORT INFORMATION
  Report Type: 
  Country: None (occurrence: None)
  Receive Date: 20110117
  Receipt Date: 20110113
  Transmission Date: 20110831
  Serious: Yes (Hospitalization)
  Sender: FDA-Public Use
  Company Number: US-AMGEN-USASP2010009327

PATIENT

DRUGS (3)
  1. METHOTREXATE [Concomitant]
     Dosage: 710 UNK, UNK
  2. ENBREL [Suspect]
     Indication: RHEUMATOID ARTHRITIS
     Dosage: 50 MG, QWK
     Route: 058
     Dates: start: 19991201, end: 20101101
  3. DILTIAZEM [Concomitant]

REACTIONS (7)
  - INFLUENZA [None]
  - INAPPROPRIATE ANTIDIURETIC HORMONE SECRETION [None]
  - SEPTIC SHOCK [None]
  - BACTERIAL INFECTION [None]
  - NASOPHARYNGITIS [None]
  - PNEUMONIA STREPTOCOCCAL [None]
  - DIARRHOEA [None]
